FAERS Safety Report 15345817 (Version 2)
Quarter: 2018Q3

REPORT INFORMATION
  Report Type: Report from Study
  Country: None (occurrence: TW)
  Receive Date: 20180904
  Receipt Date: 20180928
  Transmission Date: 20181010
  Serious: Yes (Hospitalization)
  Sender: FDA-Public Use
  Company Number: TW-ABBVIE-18K-153-2472222-00

PATIENT
  Age: 35 Year
  Sex: Female
  Weight: 51.4 kg

DRUGS (3)
  1. HUMIRA [Suspect]
     Active Substance: ADALIMUMAB
     Indication: CROHN^S DISEASE
     Route: 058
     Dates: start: 20180816
  2. RANITIDINE. [Concomitant]
     Active Substance: RANITIDINE
     Indication: CROHN^S DISEASE
     Route: 048
     Dates: start: 20180820, end: 20180821
  3. HUMIRA [Suspect]
     Active Substance: ADALIMUMAB
     Indication: CROHN^S DISEASE
     Route: 058
     Dates: start: 20170221, end: 20171218

REACTIONS (2)
  - Anal fistula [Recovered/Resolved]
  - C-reactive protein increased [Recovering/Resolving]

NARRATIVE: CASE EVENT DATE: 20180819
